FAERS Safety Report 9473028 (Version 1)
Quarter: 2013Q3

REPORT INFORMATION
  Report Type: Spontaneous
  Country: US (occurrence: US)
  Receive Date: 20130823
  Receipt Date: 20130823
  Transmission Date: 20140515
  Serious: No
  Sender: FDA-Public Use
  Company Number: US-BRISTOL-MYERS SQUIBB COMPANY-17348236

PATIENT
  Age: 73 Year
  Sex: Male
  Weight: 68.03 kg

DRUGS (3)
  1. SPRYCEL [Suspect]
     Indication: CHRONIC MYELOID LEUKAEMIA
     Route: 048
     Dates: start: 201108
  2. NORVASC [Concomitant]
  3. LIPITOR [Concomitant]

REACTIONS (2)
  - Dysphonia [Unknown]
  - Fatigue [Unknown]
